FAERS Safety Report 10082859 (Version 3)
Quarter: 2014Q2

REPORT INFORMATION
  Report Type: Spontaneous
  Country: US (occurrence: US)
  Receive Date: 20140416
  Receipt Date: 20140604
  Transmission Date: 20141212
  Serious: Yes (Other)
  Sender: FDA-Public Use
  Company Number: PHEH2014US004245

PATIENT
  Age: 54 Year
  Sex: Female
  Weight: 56.69 kg

DRUGS (8)
  1. GILENYA [Suspect]
     Indication: MULTIPLE SCLEROSIS
     Dosage: 0.5 MG, QD
     Route: 048
     Dates: start: 20110520, end: 201310
  2. AMPYRA [Suspect]
     Dosage: 10 MG, Q12H
     Dates: start: 20120710
  3. ZOMIG [Concomitant]
  4. AMBIEN [Concomitant]
  5. CELEXA [Concomitant]
  6. GABAPENTIN [Concomitant]
  7. VALPROATE [Concomitant]
     Dosage: UNK UKN, UNK
     Dates: start: 201306
  8. CORTICOSTEROIDS [Concomitant]

REACTIONS (8)
  - Herpes zoster cutaneous disseminated [Recovering/Resolving]
  - Retinal oedema [Unknown]
  - Retinal toxicity [Unknown]
  - Macular oedema [Unknown]
  - Hepatic enzyme increased [Recovered/Resolved]
  - Alanine aminotransferase increased [Recovered/Resolved]
  - Aspartate aminotransferase increased [Recovered/Resolved]
  - Multiple sclerosis relapse [Recovering/Resolving]
